FAERS Safety Report 8075728-5 (Version None)
Quarter: 2012Q1

REPORT INFORMATION
  Report Type: 
  Country: None (occurrence: None)
  Receive Date: 20120127
  Receipt Date: 20120118
  Transmission Date: 20120608
  Serious: Yes (Disabling)
  Sender: FDA-Public Use
  Company Number: JP-JNJFOC-20110900545

PATIENT
  Sex: Female
  Weight: 53 kg

DRUGS (35)
  1. PREDNISOLONE [Concomitant]
     Route: 048
     Dates: start: 20100114
  2. XYLOCAINE [Concomitant]
     Dates: start: 20100330
  3. NON-PYRINE COLD PREPARATION [Concomitant]
     Dosage: TOTAL DAILY DOSE 3 GM
     Route: 048
     Dates: start: 20101012
  4. REMICADE [Suspect]
     Route: 042
     Dates: start: 20101016
  5. REMICADE [Suspect]
     Dosage: SIXTH DOSE OF INFLIXIMAB, RECOMBINANT
     Route: 042
     Dates: start: 20110412
  6. MOVER [Concomitant]
     Route: 048
  7. INDOMETHACIN [Concomitant]
     Route: 065
  8. ISOTONIC SODIUM CHLORIDE SOLUTION [Concomitant]
     Route: 050
     Dates: start: 20101016, end: 20101016
  9. REMICADE [Suspect]
     Route: 042
     Dates: start: 20100902
  10. PREDNISOLONE [Concomitant]
     Route: 048
     Dates: start: 20110614
  11. SELTOUCH [Concomitant]
     Dates: start: 20100713
  12. RHEUMATREX [Suspect]
     Route: 048
     Dates: start: 20100125, end: 20110425
  13. PREDNISOLONE [Concomitant]
     Route: 048
     Dates: start: 20100104
  14. PRELONE [Concomitant]
     Route: 048
     Dates: start: 20110114
  15. ISOTONIC SODIUM CHLORIDE SOLUTION [Concomitant]
     Route: 042
     Dates: start: 20100114
  16. REMICADE [Suspect]
     Indication: RHEUMATOID ARTHRITIS
     Route: 042
     Dates: start: 20101214
  17. KENACORT-A OPHTHALMIC OINTMENT [Concomitant]
     Route: 050
     Dates: start: 20110531
  18. GASLON [Concomitant]
     Route: 048
     Dates: start: 20100104
  19. PRELONE [Concomitant]
     Route: 048
     Dates: start: 20110322
  20. ISOTONIC SODIUM CHLORIDE SOLUTION [Concomitant]
     Route: 050
     Dates: start: 20110215, end: 20110215
  21. REMICADE [Suspect]
     Route: 042
     Dates: start: 20110426, end: 20110610
  22. KENACORT-A OPHTHALMIC OINTMENT [Concomitant]
     Route: 050
     Dates: start: 20100330
  23. GASLON [Concomitant]
     Route: 048
     Dates: start: 20091228
  24. LIMETHASON [Concomitant]
     Route: 042
     Dates: start: 20091228
  25. REMICADE [Suspect]
     Route: 042
     Dates: start: 20100916
  26. REMICADE [Suspect]
     Route: 042
     Dates: start: 20110215
  27. CLARITHROMYCIN [Concomitant]
     Dosage: TOTAL DAILY DOSE 400 MG
     Route: 048
     Dates: start: 20101012
  28. ISOTONIC SODIUM CHLORIDE SOLUTION [Concomitant]
     Route: 050
     Dates: start: 20110412, end: 20110412
  29. ISOTONIC SODIUM CHLORIDE SOLUTION [Concomitant]
     Route: 050
     Dates: start: 20101214, end: 20101214
  30. REMICADE [Suspect]
     Route: 042
     Dates: start: 20101012
  31. RHEUMATREX [Suspect]
     Indication: RHEUMATOID ARTHRITIS
     Route: 048
     Dates: start: 20110426, end: 20110610
  32. GASLON [Concomitant]
     Route: 048
     Dates: start: 20100125
  33. PREDNISOLONE [Concomitant]
     Route: 048
     Dates: start: 20091228
  34. DEQUALINIUM [Concomitant]
     Dosage: TOTAL DAILY DOSE 3 MG
     Route: 048
     Dates: start: 20101012
  35. KETOPROFEN [Concomitant]
     Route: 065

REACTIONS (3)
  - COUGH [None]
  - RHEUMATOID ARTHRITIS [None]
  - SARCOMA [None]
